FAERS Safety Report 8484158-3 (Version None)
Quarter: 2012Q3

REPORT INFORMATION
  Report Type: 
  Country: None (occurrence: None)
  Receive Date: 20120703
  Receipt Date: 20120625
  Transmission Date: 20120928
  Serious: Yes (Hospitalization)
  Sender: FDA-Public Use
  Company Number: US-BAYER-2012-064021

PATIENT
  Age: 36 Year
  Sex: Female
  Weight: 58.549 kg

DRUGS (2)
  1. ZYRTEC [Concomitant]
  2. YAZ [Suspect]

REACTIONS (1)
  - PULMONARY EMBOLISM [None]
